FAERS Safety Report 12041910 (Version 1)
Quarter: 2016Q1

REPORT INFORMATION
  Report Type: Spontaneous
  Country: IT (occurrence: IT)
  Receive Date: 20160208
  Receipt Date: 20160208
  Transmission Date: 20160526
  Serious: Yes (Death)
  Sender: FDA-Public Use
  Company Number: IT-PFIZER INC-2016061048

PATIENT
  Age: 72 Year
  Sex: Male
  Weight: 62 kg

DRUGS (8)
  1. FOLINA [Concomitant]
     Active Substance: FOLIC ACID
     Dosage: UNK
  2. HARVONI [Suspect]
     Active Substance: LEDIPASVIR\SOFOSBUVIR
     Indication: CHRONIC HEPATITIS C
     Dosage: 490 MG, 1X/DAY
     Route: 048
     Dates: start: 20151027, end: 20151228
  3. ALDACTONE [Suspect]
     Active Substance: SPIRONOLACTONE
     Dosage: 100 MG, 2X/DAY
     Route: 048
     Dates: start: 201511
  4. TORADIUR [Suspect]
     Active Substance: TORSEMIDE
     Dosage: 1 DF, DAILY
     Route: 048
  5. TORADIUR [Suspect]
     Active Substance: TORSEMIDE
     Dosage: 1 DF, 2X/DAY
     Route: 048
     Dates: start: 201511
  6. ALDACTONE [Suspect]
     Active Substance: SPIRONOLACTONE
     Dosage: 100 MG, 1X/DAY
     Route: 048
  7. ALDACTONE [Suspect]
     Active Substance: SPIRONOLACTONE
     Dosage: 100 MG, 1X/DAY
     Route: 048
  8. TORADIUR [Suspect]
     Active Substance: TORSEMIDE
     Dosage: 10 MG, ALTERNATE DAY
     Route: 048

REACTIONS (5)
  - Melaena [Fatal]
  - Circulatory collapse [Fatal]
  - Atrial fibrillation [Fatal]
  - Anaemia [Fatal]
  - Hepatorenal syndrome [Fatal]

NARRATIVE: CASE EVENT DATE: 20151215
